FAERS Safety Report 8442871 (Version 3)
Quarter: 2013Q1

REPORT INFORMATION
  Report Type: Report from Study
  Country: DE (occurrence: DE)
  Receive Date: 20120306
  Receipt Date: 20130123
  Transmission Date: 20140127
  Serious: Yes (Hospitalization)
  Sender: FDA-Public Use
  Company Number: DE-ACTELION-A-US2012-62009

PATIENT
  Age: 40 Year
  Sex: Female

DRUGS (3)
  1. VENTAVIS [Suspect]
     Indication: PULMONARY ARTERIAL HYPERTENSION
     Dosage: 5 MCG, Q4HRS
     Route: 055
     Dates: start: 20100517
  2. VOLIBRIS [Concomitant]
  3. REVATIO [Concomitant]

REACTIONS (3)
  - Ear pain [Recovering/Resolving]
  - Pneumonia [Recovering/Resolving]
  - Fluid retention [Unknown]
